FAERS Safety Report 4673028-4 (Version None)
Quarter: 2005Q2

REPORT INFORMATION
  Report Type: 
  Country: None (occurrence: None)
  Receive Date: 20050524
  Receipt Date: 20050511
  Transmission Date: 20051028
  Serious: Yes (Hospitalization)
  Sender: FDA-Public Use
  Company Number: 2005-127786-NL

PATIENT
  Age: 28 Year
  Sex: Female

DRUGS (4)
  1. MENOTROPINS [Suspect]
     Indication: OVARIAN HYPERSTIMULATION SYNDROME
     Dosage: 225 IU, INTRAMUSCULAR
     Route: 030
  2. CHORIONIC GONADOTROPIN [Suspect]
     Dosage: 5000 IU, INTRAMUSCULAR
     Route: 030
  3. PROGESTERONE [Concomitant]
  4. MEDROXYPROGESTERONE ACETATE [Concomitant]

REACTIONS (5)
  - ABDOMINAL PAIN [None]
  - ABORTION [None]
  - ECTOPIC PREGNANCY [None]
  - GENITAL HAEMORRHAGE [None]
  - URINE HUMAN CHORIONIC GONADOTROPIN DECREASED [None]
